FAERS Safety Report 9730057 (Version 3)
Quarter: 2014Q1

REPORT INFORMATION
  Report Type: Spontaneous
  Country: US (occurrence: US)
  Receive Date: 20131204
  Receipt Date: 20140123
  Transmission Date: 20141002
  Serious: No
  Sender: FDA-Public Use
  Company Number: US-GILEAD-2013-0089165

PATIENT
  Sex: Male

DRUGS (1)
  1. LETAIRIS [Suspect]
     Indication: PULMONARY ARTERIAL HYPERTENSION
     Dosage: 5 MG, QD
     Route: 048
     Dates: start: 20120714

REACTIONS (5)
  - Hyperhidrosis [Unknown]
  - Syncope [Unknown]
  - Laryngitis [Unknown]
  - Respiratory tract congestion [Unknown]
  - Dyspnoea [Unknown]
